FAERS Safety Report 6638707-8 (Version None)
Quarter: 2010Q1

REPORT INFORMATION
  Report Type: 
  Country: None (occurrence: None)
  Receive Date: 20100316
  Receipt Date: 20100316
  Transmission Date: 20100710
  Serious: Yes (Other)
  Sender: FDA-Public Use
  Company Number: None

PATIENT
  Age: 42 Year
  Sex: Female
  Weight: 81.6475 kg

DRUGS (1)
  1. VYVANSE [Suspect]
     Indication: NARCOLEPSY
     Dosage: 70 MGS 1 DAILY PO
     Route: 048
     Dates: start: 20100217, end: 20100302

REACTIONS (7)
  - CERUMEN IMPACTION [None]
  - DRUG INEFFECTIVE [None]
  - DYSPNOEA [None]
  - EYE DISCHARGE [None]
  - FEAR [None]
  - INSOMNIA [None]
  - RASH [None]
